FAERS Safety Report 6354725-1 (Version None)
Quarter: 2009Q3

REPORT INFORMATION
  Report Type: 
  Country: None (occurrence: None)
  Receive Date: 20090909
  Receipt Date: 20090831
  Transmission Date: 20100115
  Serious: Yes (Hospitalization)
  Sender: FDA-Public Use
  Company Number: GXKR2009GR09766

PATIENT
  Age: 29 Year
  Sex: Female

DRUGS (1)
  1. METHYLPREDNISOLONE 4MG TAB [Suspect]
     Indication: DERMATOMYOSITIS
     Dosage: 16 MG, QD,

REACTIONS (2)
  - ANXIETY DISORDER [None]
  - OBSESSIVE-COMPULSIVE DISORDER [None]
